FAERS Safety Report 10034944 (Version 4)
Quarter: 2014Q2

REPORT INFORMATION
  Report Type: Spontaneous
  Country: US (occurrence: US)
  Receive Date: 20140325
  Receipt Date: 20140512
  Transmission Date: 20141212
  Serious: Yes (Hospitalization, Other)
  Sender: FDA-Public Use
  Company Number: US-INCYTE CORPORATION-2014IN000686

PATIENT
  Age: 75 Year
  Sex: Female
  Weight: 64 kg

DRUGS (15)
  1. JAKAFI [Suspect]
     Indication: MYELOFIBROSIS
     Dosage: 10 MG, BID
     Route: 048
  2. JAKAFI [Suspect]
     Dosage: NOT SPECIFIED
     Route: 048
  3. JAKAFI [Suspect]
     Dosage: 5 MG, 4 BID
     Route: 048
     Dates: start: 20140305
  4. LOSARTAN [Suspect]
     Indication: HYPERTENSION
     Dosage: 50 MG, QD
  5. SPIRONOLACTONE [Suspect]
     Indication: CARDIOVASCULAR DISORDER
     Dosage: 50 MG, QHS
     Route: 048
  6. SPIRONOLACTONE [Suspect]
     Indication: HYPERTENSION
  7. LASIX                              /00032601/ [Suspect]
     Indication: HYPERTENSION
     Dosage: 40 MG, QD
     Route: 048
  8. LASIX                              /00032601/ [Suspect]
     Indication: CARDIOVASCULAR DISORDER
  9. ALLOPURINOL [Concomitant]
  10. PLAVIX [Concomitant]
  11. LABETALOL [Concomitant]
  12. IMDUR [Concomitant]
  13. CLONIDINE [Concomitant]
  14. AMLODIPINE [Concomitant]
  15. RENVELA [Concomitant]

REACTIONS (5)
  - Hyperkalaemia [Recovered/Resolved]
  - Full blood count decreased [Unknown]
  - Muscle spasms [Recovering/Resolving]
  - Vasodilatation [Recovering/Resolving]
  - Platelet count decreased [Recovering/Resolving]
